FAERS Safety Report 16117114 (Version 1)
Quarter: 2019Q1

REPORT INFORMATION
  Report Type: Other
  Country: FR (occurrence: FR)
  Receive Date: 20190326
  Receipt Date: 20190326
  Transmission Date: 20190418
  Serious: Yes (Disabling)
  Sender: FDA-Public Use
  Company Number: FR-DENTSPLY-2019SCDP000165

PATIENT
  Age: 48 Year
  Sex: Female
  Weight: 58 kg

DRUGS (2)
  1. NAROPEINE [Suspect]
     Active Substance: ROPIVACAINE HYDROCHLORIDE
     Indication: NERVE BLOCK
     Dosage: 4 ML, (7.5 MG/ML) SOLUTION FOR INJECTION IN AMPOULE SCALENE BLOCK
     Route: 050
     Dates: start: 20180123, end: 20180123
  2. MEPIVACAINE HCL [Suspect]
     Active Substance: MEPIVACAINE\MEPIVACAINE HYDROCHLORIDE
     Indication: NERVE BLOCK
     Dosage: 4 ML, (20 MG/ML) SOLUTION INJECTABLE SCALENE BLOCK
     Route: 050
     Dates: start: 20180123, end: 20180123

REACTIONS (2)
  - Hypoaesthesia [None]
  - Motor dysfunction [None]

NARRATIVE: CASE EVENT DATE: 20180124
